FAERS Safety Report 6688224-4 (Version None)
Quarter: 2010Q2

REPORT INFORMATION
  Report Type: 
  Country: None (occurrence: None)
  Receive Date: 20100420
  Receipt Date: 20100414
  Transmission Date: 20101027
  Serious: Yes (Life-Threatening, Other)
  Sender: FDA-Public Use
  Company Number: JP-BAYER-200913976BYL

PATIENT
  Age: 61 Year
  Sex: Male
  Weight: 72 kg

DRUGS (16)
  1. NEXAVAR [Suspect]
     Indication: HEPATIC NEOPLASM MALIGNANT
     Dosage: TOTAL DAILY DOSE: 800 MG  UNIT DOSE: 200 MG
     Route: 048
     Dates: start: 20090915, end: 20090917
  2. NEXAVAR [Suspect]
     Dosage: UNIT DOSE: 200 MG
     Route: 048
     Dates: start: 20090924, end: 20091016
  3. PARIET [Concomitant]
     Route: 048
     Dates: end: 20091016
  4. PARIET [Concomitant]
     Dosage: SINCE BEFORE ADMINISTRATION
     Route: 048
     Dates: end: 20091014
  5. SHAKUYAKU-KANZO-TO [Concomitant]
     Dosage: SINCE BEFORE ADMINISTRATION
     Route: 048
     Dates: end: 20091016
  6. EUGLUCON [Concomitant]
     Dosage: SINCE BEFORE ADMINISTRATION
     Route: 048
     Dates: end: 20091016
  7. LENDORMIN [Concomitant]
     Dosage: SINCE BEFORE ADMINISTRATION
     Route: 048
     Dates: end: 20090925
  8. URSO 250 [Concomitant]
     Dosage: SINCE BEFORE ADMINISTRATION
     Route: 048
     Dates: end: 20091016
  9. LACTULOSE [Concomitant]
     Dosage: SINCE BEFORE ADMINISTRATION
     Route: 048
     Dates: end: 20090925
  10. AMINOLEBAN EN [Concomitant]
     Dosage: SINCE BEFORE ADMINISTRATION
     Route: 048
     Dates: end: 20091016
  11. PROMAC [Concomitant]
     Dosage: SINCE BEFORE ADMINISTRATION
     Route: 048
     Dates: end: 20091016
  12. DORIPENEM MONOHYDRATE [Concomitant]
     Dosage: SINCE BEFORE ADMINISTRATION
     Route: 042
     Dates: end: 20090928
  13. DORIPENEM MONOHYDRATE [Concomitant]
     Route: 042
     Dates: start: 20090929, end: 20091002
  14. CIPROXAN-I.V. [Concomitant]
     Route: 041
     Dates: start: 20091003, end: 20091009
  15. LASIX [Concomitant]
     Route: 048
     Dates: start: 20091006, end: 20091013
  16. ALDACTONE [Concomitant]
     Dosage: SINCE BEFORE ADMINISTRATION
     Route: 048
     Dates: end: 20091016

REACTIONS (5)
  - ASCITES [None]
  - INSOMNIA [None]
  - LIVER ABSCESS [None]
  - OESOPHAGEAL VARICES HAEMORRHAGE [None]
  - PYREXIA [None]
